FAERS Safety Report 4915160-3 (Version None)
Quarter: 2006Q1

REPORT INFORMATION
  Report Type: 
  Country: None (occurrence: None)
  Receive Date: 20060217
  Receipt Date: 20060206
  Transmission Date: 20060701
  Serious: Yes (Other)
  Sender: FDA-Public Use
  Company Number: GB-BRISTOL-MYERS SQUIBB COMPANY-13273222

PATIENT
  Age: 32 Year
  Sex: Male

DRUGS (6)
  1. REYATAZ [Suspect]
     Indication: HIV INFECTION
     Dates: start: 20040217, end: 20040301
  2. RITONAVIR [Suspect]
     Indication: HIV INFECTION
     Dates: start: 20040217, end: 20040301
  3. LAMIVUDINE [Concomitant]
     Indication: HIV INFECTION
     Dates: start: 20040217, end: 20040301
  4. DIDANOSINE [Concomitant]
     Indication: HIV INFECTION
     Dates: start: 20040217
  5. ACYCLOVIR SODIUM [Concomitant]
     Indication: PROPHYLAXIS
  6. COTRIM [Concomitant]
     Indication: PROPHYLAXIS

REACTIONS (1)
  - HYPERPHOSPHATAEMIA [None]
